FAERS Safety Report 12967682 (Version 1)
Quarter: 2016Q4

REPORT INFORMATION
  Report Type: Spontaneous
  Country: US (occurrence: US)
  Receive Date: 20161123
  Receipt Date: 20161123
  Transmission Date: 20170207
  Serious: No
  Sender: FDA-Public Use
  Company Number: US-TEVA-708163USA

PATIENT
  Sex: Female

DRUGS (1)
  1. OXYBUTYNIN [Suspect]
     Active Substance: OXYBUTYNIN
     Route: 065

REACTIONS (5)
  - Dry mouth [Unknown]
  - Epistaxis [Unknown]
  - Nasal dryness [Unknown]
  - Drug hypersensitivity [Unknown]
  - Cyanosis [Unknown]
